FAERS Safety Report 18816287 (Version 3)
Quarter: 2021Q4

REPORT INFORMATION
  Report Type: Spontaneous
  Country: US (occurrence: US)
  Receive Date: 20210201
  Receipt Date: 20211126
  Transmission Date: 20220303
  Serious: Yes (Other)
  Sender: FDA-Public Use
  Company Number: US-GLAXOSMITHKLINE-US2021AMR015070

PATIENT
  Sex: Female

DRUGS (7)
  1. VALTREX [Suspect]
     Active Substance: VALACYCLOVIR HYDROCHLORIDE
     Indication: Product used for unknown indication
     Dosage: UNK
  2. PFIZER-BIONTECH COVID-19 VACCINE [Suspect]
     Active Substance: TOZINAMERAN
     Indication: Product used for unknown indication
     Dosage: UNK
  3. TRANSDERM SCOP [Suspect]
     Active Substance: SCOPOLAMINE
     Indication: Product used for unknown indication
     Dosage: UNK
  4. SEPTRA [Suspect]
     Active Substance: SULFAMETHOXAZOLE\TRIMETHOPRIM
     Indication: Product used for unknown indication
     Dosage: UNK
  5. FAMVIR [Suspect]
     Active Substance: FAMCICLOVIR
     Indication: Product used for unknown indication
     Dosage: UNK
  6. EPINEPHRINE [Suspect]
     Active Substance: EPINEPHRINE
     Indication: Product used for unknown indication
     Dosage: UNK
  7. ADVIL [Suspect]
     Active Substance: IBUPROFEN
     Indication: Ocular discomfort
     Dosage: UNK

REACTIONS (21)
  - Angle closure glaucoma [Unknown]
  - Blindness unilateral [Unknown]
  - Local reaction [Unknown]
  - Pruritus [Unknown]
  - Pain [Unknown]
  - Influenza like illness [Unknown]
  - Paraesthesia [Unknown]
  - Ocular hyperaemia [Unknown]
  - Lacrimation increased [Unknown]
  - Cardiac disorder [Unknown]
  - Feeling abnormal [Unknown]
  - Eye pain [Unknown]
  - Eye infection [Unknown]
  - Vision blurred [Unknown]
  - Intraocular pressure increased [Unknown]
  - Decreased appetite [Unknown]
  - Mydriasis [Unknown]
  - Ocular discomfort [Unknown]
  - Eye operation [Unknown]
  - Corrective lens user [Unknown]
  - Product use in unapproved indication [Unknown]
